FAERS Safety Report 6942392-5 (Version None)
Quarter: 2010Q3

REPORT INFORMATION
  Report Type: 
  Country: None (occurrence: None)
  Receive Date: 20100826
  Receipt Date: 20100823
  Transmission Date: 20110219
  Serious: Yes (Death)
  Sender: FDA-Public Use
  Company Number: PHHY2010US45893

PATIENT
  Sex: Male

DRUGS (2)
  1. EXJADE [Suspect]
     Indication: NEOPLASM
     Dosage: 2000 MG, QD
     Route: 048
  2. ZOFRAN [Concomitant]
     Route: 048

REACTIONS (5)
  - CERUMEN REMOVAL [None]
  - DEATH [None]
  - EAR INFECTION [None]
  - HEADACHE [None]
  - PYREXIA [None]
